FAERS Safety Report 10585069 (Version 1)
Quarter: 2014Q4

REPORT INFORMATION
  Report Type: Spontaneous
  Country: US (occurrence: None)
  Receive Date: 20141113
  Receipt Date: 20141113
  Transmission Date: 20150529
  Serious: Yes (Hospitalization, Other)
  Sender: FDA-Public Use
  Company Number: ADR-2014-02096

PATIENT
  Age: 17 Year
  Sex: Male

DRUGS (10)
  1. KEFLEX [Suspect]
     Active Substance: CEPHALEXIN
  2. BACLOFEN INTRATHECAL [Suspect]
     Active Substance: BACLOFEN
     Indication: MUSCLE SPASTICITY
     Dates: start: 20140728, end: 20140911
  3. PERIACTIN [Suspect]
     Active Substance: CYPROHEPTADINE HYDROCHLORIDE
  4. MOTRIN [Suspect]
     Active Substance: IBUPROFEN
  5. BACLOFEN ORAL [Suspect]
     Active Substance: BACLOFEN
  6. BACLOFEN ORAL [Suspect]
     Active Substance: BACLOFEN
  7. VALIUM [Suspect]
     Active Substance: DIAZEPAM
  8. TEGRETOL [Suspect]
     Active Substance: CARBAMAZEPINE
  9. ALBUTEROL. [Concomitant]
     Active Substance: ALBUTEROL
  10. MIRALAX [Suspect]
     Active Substance: POLYETHYLENE GLYCOL 3350

REACTIONS (7)
  - Staphylococcus test positive [None]
  - Incision site infection [None]
  - Neurogenic bladder [None]
  - Muscle spasticity [None]
  - Feeling hot [None]
  - Implant site extravasation [None]
  - Staphylococcal infection [None]

NARRATIVE: CASE EVENT DATE: 20140909
